FAERS Safety Report 16112352 (Version 1)
Quarter: 2019Q1

REPORT INFORMATION
  Report Type: Spontaneous
  Country: US (occurrence: US)
  Receive Date: 20190325
  Receipt Date: 20190325
  Transmission Date: 20190418
  Serious: Yes (Hospitalization, Other)
  Sender: FDA-Public Use
  Company Number: US-GLAXOSMITHKLINE-US2019GSK050503

PATIENT
  Age: 47 Year
  Sex: Male

DRUGS (1)
  1. LAMOTRIGINE. [Suspect]
     Active Substance: LAMOTRIGINE
     Indication: EPILEPSY
     Dosage: UNK

REACTIONS (9)
  - Haemophagocytic lymphohistiocytosis [Unknown]
  - Leukopenia [Recovered/Resolved]
  - Rash generalised [Recovered/Resolved]
  - Transaminases increased [Unknown]
  - Splenomegaly [Unknown]
  - Pyrexia [Recovering/Resolving]
  - Thrombocytopenia [Recovered/Resolved]
  - Hyperplasia [Unknown]
  - Histiocytosis [Unknown]
